FAERS Safety Report 5958124-3 (Version None)
Quarter: 2008Q4

REPORT INFORMATION
  Report Type: 
  Country: None (occurrence: None)
  Receive Date: 20081117
  Receipt Date: 20081117
  Transmission Date: 20090506
  Serious: Yes (Other)
  Sender: FDA-Public Use
  Company Number: None

PATIENT
  Age: 73 Year
  Sex: Male
  Weight: 72.5755 kg

DRUGS (2)
  1. MYOVIEW [Suspect]
     Indication: CARDIAC STRESS TEST
     Dates: start: 20081018, end: 20081018
  2. ADENOSINE [Suspect]

REACTIONS (1)
  - URTICARIA [None]
